FAERS Safety Report 17871739 (Version 2)
Quarter: 2024Q1

REPORT INFORMATION
  Report Type: Spontaneous
  Country: US (occurrence: US)
  Receive Date: 20200608
  Receipt Date: 20240321
  Transmission Date: 20240410
  Serious: Yes (Hospitalization, Other)
  Sender: FDA-Public Use
  Company Number: US-AMNEAL PHARMACEUTICALS-2020-AMRX-01556

PATIENT
  Age: 40 Year
  Sex: Female
  Weight: 81 kg

DRUGS (2)
  1. ACTIVELLA [Suspect]
     Active Substance: ESTRADIOL\NORETHINDRONE ACETATE
     Indication: Endometriosis
     Dosage: 1 DOSAGE FORM, 1 /DAY
     Route: 048
     Dates: start: 20180925
  2. ELAGOLIX [Suspect]
     Active Substance: ELAGOLIX
     Indication: Endometriosis
     Dosage: 1 DOSAGE FORM, EVERY 1 DAYS (400MG)
     Route: 048
     Dates: start: 20180925

REACTIONS (1)
  - Spondylolisthesis [Recovered/Resolved]

NARRATIVE: CASE EVENT DATE: 20190315
